FAERS Safety Report 9200596 (Version 1)
Quarter: 2013Q1

REPORT INFORMATION
  Report Type: Report from Study
  Country: US (occurrence: US)
  Receive Date: 20130329
  Receipt Date: 20130329
  Transmission Date: 20140127
  Serious: Yes (Other)
  Sender: FDA-Public Use
  Company Number: US-PFIZER INC-2006058691

PATIENT
  Age: 51 Year
  Sex: Female

DRUGS (1)
  1. MOTRIN IB [Suspect]
     Indication: BACK PAIN
     Dosage: 200 MG, AS NEEDED
     Route: 065

REACTIONS (3)
  - Transient ischaemic attack [Unknown]
  - Heart rate increased [Unknown]
  - Dyspnoea [Unknown]
